FAERS Safety Report 6193958-4 (Version None)
Quarter: 2009Q2

REPORT INFORMATION
  Report Type: 
  Country: None (occurrence: None)
  Receive Date: 20090518
  Receipt Date: 20090508
  Transmission Date: 20091009
  Serious: Yes (Other)
  Sender: FDA-Public Use
  Company Number: PHEH2009US00719

PATIENT
  Sex: Female

DRUGS (10)
  1. ZOMETA [Suspect]
     Dosage: 4 MG, QMO
  2. AREDIA [Suspect]
  3. CHEMOTHERAPEUTICS NOS [Concomitant]
  4. FOSAMAX [Concomitant]
     Dosage: 70 MG, QW
  5. NORVASC [Concomitant]
     Dosage: 5 MG, QD
  6. AVAPRO [Concomitant]
     Dosage: 300 MG, QD
  7. SYNTHROID [Concomitant]
     Dosage: 0.175 MG, QD
  8. ASPIRIN [Concomitant]
     Dosage: 81 MG, QD
  9. LIPITOR [Concomitant]
     Dosage: 20 MG, QD
  10. ARIMIDEX [Concomitant]
     Dosage: 1 MG, QD

REACTIONS (5)
  - DENTAL CARIES [None]
  - OSTEONECROSIS [None]
  - POOR PERSONAL HYGIENE [None]
  - TOOTH EXTRACTION [None]
  - TOOTH LOSS [None]
